FAERS Safety Report 6213347-3 (Version None)
Quarter: 2009Q2

REPORT INFORMATION
  Report Type: 
  Country: None (occurrence: None)
  Receive Date: 20090601
  Receipt Date: 20090601
  Transmission Date: 20091009
  Serious: Yes (Other)
  Sender: FDA-Public Use
  Company Number: None

PATIENT
  Age: 46 Year
  Sex: Female
  Weight: 65.7716 kg

DRUGS (1)
  1. MIRENA [Suspect]
     Indication: CONTRACEPTION
     Dates: start: 20090415, end: 20090529

REACTIONS (18)
  - ANXIETY [None]
  - CRYING [None]
  - DEPRESSION [None]
  - DYSPAREUNIA [None]
  - FATIGUE [None]
  - HAEMORRHAGE [None]
  - HAIR TEXTURE ABNORMAL [None]
  - HYPOAESTHESIA [None]
  - INSOMNIA [None]
  - LOSS OF LIBIDO [None]
  - MENORRHAGIA [None]
  - MIGRAINE WITH AURA [None]
  - MOOD ALTERED [None]
  - MUSCLE SPASMS [None]
  - PAIN [None]
  - PARAESTHESIA [None]
  - SKIN DISORDER [None]
  - WEIGHT INCREASED [None]
